FAERS Safety Report 25092952 (Version 1)
Quarter: 2025Q1

REPORT INFORMATION
  Report Type: Spontaneous
  Country: FR (occurrence: FR)
  Receive Date: 20250319
  Receipt Date: 20250319
  Transmission Date: 20250409
  Serious: Yes (Hospitalization, Other)
  Sender: AUROBINDO
  Company Number: FR-AFSSAPS-TS2025000178

PATIENT
  Age: 78 Year
  Sex: Male
  Weight: 67 kg

DRUGS (2)
  1. FLECAINIDE [Suspect]
     Active Substance: FLECAINIDE
     Indication: Cardiomyopathy
     Dosage: 150 MILLIGRAM, ONCE A DAY
     Route: 048
     Dates: end: 20250219
  2. RITUXIMAB [Suspect]
     Active Substance: RITUXIMAB
     Indication: Hypersensitivity pneumonitis
     Route: 042
     Dates: start: 20250122, end: 20250205

REACTIONS (1)
  - Interstitial lung disease [Not Recovered/Not Resolved]

NARRATIVE: CASE EVENT DATE: 20250208
